FAERS Safety Report 22389505 (Version 1)
Quarter: 2023Q2

REPORT INFORMATION
  Report Type: Report from Study
  Country: US (occurrence: None)
  Receive Date: 20230531
  Receipt Date: 20230531
  Transmission Date: 20230722
  Serious: Yes (Hospitalization)
  Sender: FDA-Public Use
  Company Number: US-Eisai Medical Research-EC-2023-139268

PATIENT
  Age: 72 Year
  Sex: Female

DRUGS (1)
  1. LENVIMA [Suspect]
     Active Substance: LENVATINIB
     Indication: Uterine cancer
     Route: 048
     Dates: start: 20230421, end: 202305

REACTIONS (7)
  - Haemorrhage [Unknown]
  - Pain in extremity [Unknown]
  - Dehydration [Unknown]
  - Decreased appetite [Recovering/Resolving]
  - Vomiting [Recovered/Resolved]
  - Full blood count abnormal [Unknown]
  - Platelet count decreased [Unknown]

NARRATIVE: CASE EVENT DATE: 20230101
